FAERS Safety Report 24080595 (Version 1)
Quarter: 2024Q3

REPORT INFORMATION
  Report Type: Spontaneous
  Country: BR (occurrence: BR)
  Receive Date: 20240711
  Receipt Date: 20240711
  Transmission Date: 20241016
  Serious: Yes (Other)
  Sender: ELI LILLY AND CO
  Company Number: BR-ELI_LILLY_AND_COMPANY-BR202407001534

PATIENT
  Sex: Male

DRUGS (4)
  1. BASAGLAR [Suspect]
     Active Substance: INSULIN GLARGINE
     Indication: Product used for unknown indication
     Dosage: 24 INTERNATIONAL UNIT, UNKNOWN
     Route: 065
     Dates: start: 2023
  2. BASAGLAR [Suspect]
     Active Substance: INSULIN GLARGINE
     Indication: Product used for unknown indication
     Dosage: 24 INTERNATIONAL UNIT, UNKNOWN
     Route: 065
     Dates: start: 2023
  3. BASAGLAR [Suspect]
     Active Substance: INSULIN GLARGINE
     Dosage: 24 INTERNATIONAL UNIT, UNKNOWN
     Route: 065
     Dates: start: 2023
  4. BASAGLAR [Suspect]
     Active Substance: INSULIN GLARGINE
     Dosage: 24 INTERNATIONAL UNIT, UNKNOWN
     Route: 065
     Dates: start: 2023

REACTIONS (3)
  - Cerebrovascular accident [Unknown]
  - Product storage error [Unknown]
  - Injection site pain [Unknown]

NARRATIVE: CASE EVENT DATE: 20240519
